APPROVED DRUG PRODUCT: DICLOFENAC SODIUM
Active Ingredient: DICLOFENAC SODIUM
Strength: 3%
Dosage Form/Route: GEL;TOPICAL
Application: A206493 | Product #001 | TE Code: AB
Applicant: ACTAVIS MID ATLANTIC LLC
Approved: Dec 2, 2015 | RLD: No | RS: No | Type: RX